FAERS Safety Report 7631751-3 (Version None)
Quarter: 2011Q3

REPORT INFORMATION
  Report Type: 
  Country: None (occurrence: None)
  Receive Date: 20110725
  Receipt Date: 20110304
  Transmission Date: 20111222
  Serious: No
  Sender: FDA-Public Use
  Company Number: US-BRISTOL-MYERS SQUIBB COMPANY-15589211

PATIENT
  Age: 64 Year
  Sex: Female
  Weight: 75 kg

DRUGS (5)
  1. COUMADIN [Suspect]
     Indication: MITRAL VALVE REPLACEMENT
  2. IBUPROFEN (ADVIL) [Concomitant]
  3. VYTORIN [Concomitant]
  4. METOPROLOL TARTRATE [Concomitant]
  5. VITAMIN TAB [Concomitant]

REACTIONS (1)
  - INTERNATIONAL NORMALISED RATIO DECREASED [None]
